FAERS Safety Report 13237948 (Version 2)
Quarter: 2017Q2

REPORT INFORMATION
  Report Type: Spontaneous
  Country: GB (occurrence: GB)
  Receive Date: 20170216
  Receipt Date: 20170509
  Transmission Date: 20170830
  Serious: Yes (Hospitalization, Other)
  Sender: FDA-Public Use
  Company Number: GB-STRIDES ARCOLAB LIMITED-2017SP002337

PATIENT

DRUGS (1)
  1. IBUPROFEN. [Suspect]
     Active Substance: IBUPROFEN
     Indication: OSTEOARTHRITIS
     Dosage: 400 MG, TID
     Route: 065

REACTIONS (14)
  - Gastric ulcer [Recovered/Resolved]
  - Abdominal lymphadenopathy [Unknown]
  - Gastrointestinal disorder [Unknown]
  - Weight decreased [Unknown]
  - Ileal stenosis [Unknown]
  - Hypoalbuminaemia [Unknown]
  - Small intestinal obstruction [Recovered/Resolved]
  - Decreased appetite [Recovered/Resolved]
  - Anaemia [Unknown]
  - Hypokalaemia [Unknown]
  - Diarrhoea [Unknown]
  - Intestinal diaphragm disease [Unknown]
  - Small intestine ulcer [Unknown]
  - Abdominal pain [Unknown]
